FAERS Safety Report 13919553 (Version 1)
Quarter: 2017Q3

REPORT INFORMATION
  Report Type: Spontaneous
  Country: FR (occurrence: FR)
  Receive Date: 20170830
  Receipt Date: 20170830
  Transmission Date: 20171127
  Serious: Yes (Death, Hospitalization)
  Sender: FDA-Public Use
  Company Number: FR-ASTRAZENECA-2017SE86937

PATIENT
  Age: 86 Year
  Sex: Male

DRUGS (14)
  1. AMIODARONE [Concomitant]
     Active Substance: AMIODARONE
     Dates: start: 20170616
  2. LASILIX SPECIAL [Concomitant]
     Active Substance: FUROSEMIDE
     Dosage: LASILIX SPECIAL
  3. REMIFENTANIL [Concomitant]
     Active Substance: REMIFENTANIL
     Dates: start: 20170705
  4. DIAMOX SEQUELS [Concomitant]
     Active Substance: ACETAZOLAMIDE
     Dates: start: 20170618, end: 20170721
  5. DOBUTAMINE [Concomitant]
     Active Substance: DOBUTAMINE\DOBUTAMINE HYDROCHLORIDE
  6. INEXIUM [Suspect]
     Active Substance: ESOMEPRAZOLE
     Route: 048
     Dates: start: 20170618, end: 20170722
  7. NOVORAPID [Concomitant]
     Active Substance: INSULIN ASPART
     Dates: start: 20170705
  8. PARACETAMOL [Concomitant]
     Active Substance: ACETAMINOPHEN
     Dates: start: 20170618, end: 20170721
  9. LEVETIRACETAM. [Suspect]
     Active Substance: LEVETIRACETAM
     Route: 048
     Dates: start: 20170705
  10. LASILIX SPECIAL [Concomitant]
     Active Substance: FUROSEMIDE
     Dosage: 40 MG/DAY
     Dates: end: 20170627
  11. HYDROCORTISONE. [Concomitant]
     Active Substance: HYDROCORTISONE
     Dates: start: 20170617, end: 20170721
  12. VIMPAT [Suspect]
     Active Substance: LACOSAMIDE
     Route: 048
     Dates: start: 20170628
  13. VALIUM [Concomitant]
     Active Substance: DIAZEPAM
     Dates: start: 20170628
  14. NOREPINEPHRINE. [Concomitant]
     Active Substance: NOREPINEPHRINE
     Dates: start: 20170713

REACTIONS (2)
  - Leukopenia [Fatal]
  - Neutropenia [Fatal]

NARRATIVE: CASE EVENT DATE: 20170721
